FAERS Safety Report 20058450 (Version 1)
Quarter: 2021Q4

REPORT INFORMATION
  Report Type: Spontaneous
  Country: US (occurrence: None)
  Receive Date: 20211111
  Receipt Date: 20211111
  Transmission Date: 20220303
  Serious: No
  Sender: FDA-Public Use
  Company Number: None

PATIENT
  Age: 52 Year
  Sex: Male

DRUGS (1)
  1. LARYNG-O-JET [Suspect]
     Active Substance: LIDOCAINE HYDROCHLORIDE
     Indication: Product used for unknown indication

REACTIONS (5)
  - Device breakage [None]
  - Foreign body in respiratory tract [None]
  - Swollen tongue [None]
  - Endotracheal intubation complication [None]
  - Device use issue [None]
